FAERS Safety Report 5963967-6 (Version None)
Quarter: 2008Q4

REPORT INFORMATION
  Report Type: 
  Country: None (occurrence: None)
  Receive Date: 20081124
  Receipt Date: 20081112
  Transmission Date: 20090506
  Serious: No
  Sender: FDA-Public Use
  Company Number: JP-ASTRAZENECA-2008AP08022

PATIENT
  Age: 20995 Day
  Sex: Male

DRUGS (16)
  1. SEROQUEL [Suspect]
     Indication: SCHIZOPHRENIA
     Route: 048
     Dates: start: 20080125, end: 20080131
  2. SEROQUEL [Suspect]
     Route: 048
     Dates: start: 20080201, end: 20080207
  3. SEROQUEL [Suspect]
     Route: 048
     Dates: start: 20080208, end: 20080828
  4. SEROQUEL [Suspect]
     Route: 048
     Dates: start: 20080829, end: 20080911
  5. RISPERIDONE [Concomitant]
     Indication: SCHIZOPHRENIA
     Route: 048
     Dates: start: 20041206
  6. RISPERIDONE [Concomitant]
     Route: 048
     Dates: end: 20080424
  7. RISPERIDONE [Concomitant]
     Dosage: TAPERING
     Route: 048
     Dates: end: 20080707
  8. CONTMIN [Concomitant]
     Indication: SCHIZOPHRENIA
     Route: 048
     Dates: start: 19951031
  9. PYRAMISTIN [Concomitant]
     Indication: PARKINSONISM
     Route: 048
     Dates: start: 20060517
  10. PANTOSIN [Concomitant]
     Indication: CONSTIPATION
     Route: 048
     Dates: start: 20041206
  11. RENDEM [Concomitant]
     Indication: SCHIZOPHRENIA
     Route: 048
     Dates: start: 20041206
  12. NELUROLEN [Concomitant]
     Indication: SCHIZOPHRENIA
     Route: 048
     Dates: start: 20041206
  13. ISOMYTAL [Concomitant]
     Indication: SCHIZOPHRENIA
     Route: 048
     Dates: start: 20041206
  14. BROVARIN [Concomitant]
     Indication: SCHIZOPHRENIA
     Route: 048
     Dates: start: 20041206
  15. PURSENNID [Concomitant]
     Indication: CONSTIPATION
     Route: 048
     Dates: start: 20041206
  16. MICARDIS [Concomitant]
     Indication: HYPERTENSION
     Route: 048
     Dates: start: 20041206

REACTIONS (1)
  - ALOPECIA [None]
